FAERS Safety Report 10730256 (Version 1)
Quarter: 2015Q1

REPORT INFORMATION
  Report Type: Spontaneous
  Country: JP (occurrence: JP)
  Receive Date: 20150122
  Receipt Date: 20150122
  Transmission Date: 20150721
  Serious: Yes (Other)
  Sender: FDA-Public Use
  Company Number: ALCN2008JP002726

PATIENT
  Age: 28 Year
  Sex: Female

DRUGS (3)
  1. PITOS [Concomitant]
     Indication: BLEPHARITIS
     Dosage: 0.2 UNK, QID
     Route: 047
     Dates: start: 20080619, end: 20080619
  2. PATANOL [Suspect]
     Active Substance: OLOPATADINE HYDROCHLORIDE
     Indication: CONJUNCTIVITIS ALLERGIC
     Dosage: 1 GTT, QID
     Route: 047
     Dates: start: 20080619, end: 20080619
  3. PATANOL [Suspect]
     Active Substance: OLOPATADINE HYDROCHLORIDE
     Indication: BLEPHARITIS

REACTIONS (1)
  - Anaphylactoid reaction [Recovering/Resolving]

NARRATIVE: CASE EVENT DATE: 20080619
